FAERS Safety Report 9960588 (Version 1)
Quarter: 2014Q1

REPORT INFORMATION
  Report Type: Report from Study
  Country: US (occurrence: US)
  Receive Date: 20140305
  Receipt Date: 20140305
  Transmission Date: 20141002
  Serious: No
  Sender: FDA-Public Use
  Company Number: US-ABBVIE-13P-163-1108864-00

PATIENT
  Age: 34 Year
  Sex: Female

DRUGS (9)
  1. HUMIRA [Suspect]
     Indication: RHEUMATOID ARTHRITIS
     Route: 058
     Dates: start: 201301
  2. LISINOPRIL [Concomitant]
     Indication: PRODUCT USED FOR UNKNOWN INDICATION
  3. LISINOPRIL [Concomitant]
  4. SEASONAL-BIRTH CONTROL [Concomitant]
     Indication: CONTRACEPTION
  5. SAVELLA [Concomitant]
     Indication: FIBROMYALGIA
     Dosage: 50 MG TWICE DAILY
  6. METOPROLOL [Concomitant]
     Indication: PRODUCT USED FOR UNKNOWN INDICATION
     Dosage: 100 MG DAILY
  7. FLOVENT [Concomitant]
     Indication: SEASONAL ALLERGY
     Dosage: DAILY
  8. PROVENTIL [Concomitant]
     Indication: ASTHMA
  9. SEASONAL ALLERGY MEDICINES [Concomitant]
     Indication: PRODUCT USED FOR UNKNOWN INDICATION

REACTIONS (5)
  - Dizziness [Not Recovered/Not Resolved]
  - Visual impairment [Not Recovered/Not Resolved]
  - Headache [Not Recovered/Not Resolved]
  - Headache [Not Recovered/Not Resolved]
  - Metamorphopsia [Not Recovered/Not Resolved]
